FAERS Safety Report 6070373-5 (Version None)
Quarter: 2009Q1

REPORT INFORMATION
  Report Type: 
  Country: None (occurrence: None)
  Receive Date: 20090209
  Receipt Date: 20090129
  Transmission Date: 20090719
  Serious: Yes (Other)
  Sender: FDA-Public Use
  Company Number: US-JNJFOC-20081006932

PATIENT
  Sex: Male
  Weight: 40.82 kg

DRUGS (7)
  1. REMICADE [Suspect]
     Route: 042
     Dates: end: 20081209
  2. REMICADE [Suspect]
     Dosage: 2ND INFUSION
     Route: 042
     Dates: end: 20081209
  3. REMICADE [Suspect]
     Indication: CROHN'S DISEASE
     Dosage: 1ST INFUSION
     Route: 042
     Dates: end: 20081209
  4. PREDNISONE [Concomitant]
     Indication: CROHN'S DISEASE
  5. METHOTREXATE [Concomitant]
     Indication: CROHN'S DISEASE
  6. BENADRYL [Concomitant]
     Indication: PREMEDICATION
  7. TYLENOL [Concomitant]
     Indication: PREMEDICATION

REACTIONS (3)
  - CONFUSIONAL STATE [None]
  - DEPRESSION [None]
  - EUPHORIC MOOD [None]
